FAERS Safety Report 5304383-X (Version None)
Quarter: 2007Q2

REPORT INFORMATION
  Report Type: 
  Country: None (occurrence: None)
  Receive Date: 20070419
  Receipt Date: 20070419
  Transmission Date: 20071010
  Serious: Yes (Hospitalization)
  Sender: FDA-Public Use
  Company Number: None

PATIENT
  Sex: Male
  Weight: 102.9665 kg

DRUGS (3)
  1. ETODOLAC [Suspect]
     Indication: PSORIATIC ARTHROPATHY
     Dosage: 500 MG  BID  PO
     Route: 048
  2. METHOTREXATE [Concomitant]
  3. SULFASALAZINE [Concomitant]

REACTIONS (5)
  - ARTERIOVENOUS MALFORMATION [None]
  - DUODENAL ULCER [None]
  - HAEMOGLOBIN DECREASED [None]
  - RECTAL HAEMORRHAGE [None]
  - SYNCOPE [None]
